FAERS Safety Report 13189032 (Version 1)
Quarter: 2017Q1

REPORT INFORMATION
  Report Type: Spontaneous
  Country: US (occurrence: US)
  Receive Date: 20170203
  Receipt Date: 20170203
  Transmission Date: 20170428
  Serious: No
  Sender: FDA-Public Use
  Company Number: None

PATIENT
  Age: 42 Year
  Sex: Female
  Weight: 75.6 kg

DRUGS (3)
  1. FINACEA [Suspect]
     Active Substance: AZELAIC ACID
     Indication: ROSACEA
     Dosage: ?          QUANTITY:1 1;?
     Route: 061
     Dates: start: 20170202
  2. SYNTHROID [Concomitant]
     Active Substance: LEVOTHYROXINE SODIUM
  3. MULTI VITAMINS [Concomitant]
     Active Substance: VITAMINS

REACTIONS (2)
  - Application site pain [None]
  - Application site pruritus [None]

NARRATIVE: CASE EVENT DATE: 20170203
